FAERS Safety Report 8774195 (Version 6)
Quarter: 2014Q4

REPORT INFORMATION
  Report Type: Spontaneous
  Country: US (occurrence: US)
  Receive Date: 20120907
  Receipt Date: 20141119
  Transmission Date: 20150529
  Serious: Yes (Hospitalization, Disabling, Other)
  Sender: FDA-Public Use
  Company Number: US-009507513-1208USA011475

PATIENT
  Sex: Female
  Weight: 57.6 kg

DRUGS (4)
  1. FOSAMAX [Suspect]
     Active Substance: ALENDRONATE SODIUM
     Dosage: 70 MG, QW
     Route: 048
     Dates: end: 201110
  2. FOSAMAX [Suspect]
     Active Substance: ALENDRONATE SODIUM
     Indication: BONE DISORDER
     Dosage: 10 MG, QD
     Route: 048
     Dates: start: 1999
  3. ALENDRONATE SODIUM. [Suspect]
     Active Substance: ALENDRONATE SODIUM
     Dosage: 70 MG, QW
     Route: 048
  4. ACTONEL [Suspect]
     Active Substance: RISEDRONATE SODIUM
     Indication: BONE DISORDER
     Dosage: 35 MG, QW
     Route: 048
     Dates: start: 201103, end: 201108

REACTIONS (29)
  - Fall [Unknown]
  - Carotid artery stenosis [Unknown]
  - Gastroenteritis [Unknown]
  - Syncope [Unknown]
  - Osteopenia [Unknown]
  - Depression [Recovered/Resolved]
  - Anxiety [Recovered/Resolved]
  - Arthritis [Unknown]
  - Open reduction of fracture [Unknown]
  - Osteoporosis [Unknown]
  - Hypertension [Unknown]
  - Melanocytic naevus [Unknown]
  - Pericardial effusion [Unknown]
  - Hypokalaemia [Unknown]
  - Cardiomegaly [Unknown]
  - Femur fracture [Not Recovered/Not Resolved]
  - Cardiomegaly [Unknown]
  - Abdominal pain upper [Recovered/Resolved]
  - Femur fracture [Unknown]
  - Cardiac pacemaker insertion [Unknown]
  - Gastrooesophageal reflux disease [Unknown]
  - Dementia Alzheimer^s type [Unknown]
  - Anaemia postoperative [Unknown]
  - Decreased appetite [Unknown]
  - Low turnover osteopathy [Not Recovered/Not Resolved]
  - Hypokalaemia [Recovered/Resolved]
  - Anaemia [Unknown]
  - Mental status changes [Unknown]
  - Ventricular dysfunction [Unknown]

NARRATIVE: CASE EVENT DATE: 2000
